FAERS Safety Report 25713816 (Version 2)
Quarter: 2025Q3

REPORT INFORMATION
  Report Type: Spontaneous
  Country: EU (occurrence: EU)
  Receive Date: 20250822
  Receipt Date: 20250904
  Transmission Date: 20251020
  Serious: Yes (Hospitalization, Other)
  Sender: SANDOZ
  Company Number: EU-BoehringerIngelheim-2025-BI-087361

PATIENT
  Age: 44 Year
  Sex: Male

DRUGS (4)
  1. ADALIMUMAB [Suspect]
     Active Substance: ADALIMUMAB
     Indication: Psoriatic arthropathy
     Route: 065
     Dates: end: 2022
  2. EMPAGLIFLOZIN [Suspect]
     Active Substance: EMPAGLIFLOZIN
     Indication: Type 2 diabetes mellitus
     Route: 065
     Dates: end: 202406
  3. INFLIXIMAB [Suspect]
     Active Substance: INFLIXIMAB
     Indication: Psoriatic arthropathy
     Route: 065
  4. METFORMIN [Suspect]
     Active Substance: METFORMIN HYDROCHLORIDE
     Indication: Type 2 diabetes mellitus
     Dosage: 750 MG, Q12H (START DATE: ??-MAY-2024)
     Route: 065
     Dates: end: 202406

REACTIONS (8)
  - Diabetes mellitus [Unknown]
  - Hypoglycaemia [Recovered/Resolved]
  - Pericarditis [Unknown]
  - Pulmonary embolism [Unknown]
  - Diverticulitis [Unknown]
  - Hyperglycaemia [Unknown]
  - Therapeutic response decreased [Unknown]
  - Drug ineffective [Unknown]

NARRATIVE: CASE EVENT DATE: 20200101
